FAERS Safety Report 7322954-6 (Version None)
Quarter: 2011Q1

REPORT INFORMATION
  Report Type: 
  Country: None (occurrence: None)
  Receive Date: 20110301
  Receipt Date: 20110221
  Transmission Date: 20110831
  Serious: Yes (Hospitalization, Other)
  Sender: FDA-Public Use
  Company Number: GB-JNJFOC-20100405793

PATIENT
  Age: 73 Year
  Sex: Male

DRUGS (9)
  1. LEVOMEPROMAZINE [Suspect]
     Indication: ANTIEMETIC SUPPORTIVE CARE
     Route: 065
  2. NSAID [Concomitant]
     Indication: PRODUCT USED FOR UNKNOWN INDICATION
     Route: 065
  3. CYCLIZINE [Suspect]
     Indication: ANTIEMETIC SUPPORTIVE CARE
     Route: 058
  4. DIAMORPHINE [Suspect]
     Indication: ARTHRALGIA
     Route: 058
  5. DIAMORPHINE [Suspect]
     Route: 058
  6. LEVOMEPROMAZINE [Suspect]
     Route: 065
  7. MORPHINE [Suspect]
     Indication: ARTHRALGIA
     Route: 048
  8. HALOPERIDOL [Suspect]
     Indication: ANTIEMETIC SUPPORTIVE CARE
     Route: 065
  9. OXYCODONE [Concomitant]
     Indication: PAIN
     Route: 065

REACTIONS (20)
  - MIOSIS [None]
  - METASTASES TO LIVER [None]
  - DRUG INEFFECTIVE [None]
  - MYOCLONUS [None]
  - DELIRIUM [None]
  - NAUSEA [None]
  - PRURITUS [None]
  - MALAISE [None]
  - HALLUCINATION [None]
  - WEIGHT DECREASED [None]
  - LIVER FUNCTION TEST ABNORMAL [None]
  - AGITATION [None]
  - CONSCIOUSNESS FLUCTUATING [None]
  - CIRCADIAN RHYTHM SLEEP DISORDER [None]
  - DIARRHOEA [None]
  - VOMITING [None]
  - CONFUSIONAL STATE [None]
  - DECREASED APPETITE [None]
  - CACHEXIA [None]
  - TOXICITY TO VARIOUS AGENTS [None]
